FAERS Safety Report 13054380 (Version 1)
Quarter: 2016Q4

REPORT INFORMATION
  Report Type: Spontaneous
  Country: IT (occurrence: IT)
  Receive Date: 20161222
  Receipt Date: 20161222
  Transmission Date: 20170207
  Serious: Yes (Hospitalization)
  Sender: FDA-Public Use
  Company Number: IT-PFIZER INC-2016588898

PATIENT
  Age: 6 Year
  Sex: Male
  Weight: 30 kg

DRUGS (2)
  1. FENTANEST [Suspect]
     Active Substance: FENTANYL CITRATE
     Indication: SEDATION
     Dosage: 40 UG, SINGLE
     Route: 045
     Dates: start: 20160919, end: 20160919
  2. DONOP [Suspect]
     Active Substance: NITROUS OXIDE\OXYGEN
     Indication: SEDATION
     Dosage: UNK

REACTIONS (2)
  - Retching [Recovering/Resolving]
  - Vomiting [Recovering/Resolving]

NARRATIVE: CASE EVENT DATE: 20160919
